FAERS Safety Report 19821821 (Version 1)
Quarter: 2021Q3

REPORT INFORMATION
  Report Type: Spontaneous
  Country: US (occurrence: US)
  Receive Date: 20210913
  Receipt Date: 20210913
  Transmission Date: 20211014
  Serious: Yes (Other)
  Sender: FDA-Public Use
  Company Number: None

PATIENT
  Age: 77 Year
  Sex: Male

DRUGS (12)
  1. CLOPIDOGREL [Concomitant]
     Active Substance: CLOPIDOGREL BISULFATE
  2. OMEPRAZOLE 40 MG [Concomitant]
     Active Substance: OMEPRAZOLE
  3. ISOSORBIDE MONONITRATE 60 MG [Concomitant]
     Active Substance: ISOSORBIDE MONONITRATE
  4. OLMESARTAN 20 MG [Concomitant]
     Active Substance: OLMESARTAN MEDOXOMIL
  5. METOPROLOL TARTRATE 50 MG [Concomitant]
     Active Substance: METOPROLOL TARTRATE
  6. TAMSULOSIN 0.4 MG [Concomitant]
     Active Substance: TAMSULOSIN
  7. ALENDRONATE [Concomitant]
     Active Substance: ALENDRONATE SODIUM
  8. AMLODIPINE [Concomitant]
     Active Substance: AMLODIPINE BESYLATE
  9. CLONAZEPAM 1 MG [Concomitant]
     Active Substance: CLONAZEPAM
  10. ROSUVASTATIN 20 MG [Concomitant]
     Active Substance: ROSUVASTATIN
  11. VITAMIN D2 [Concomitant]
     Active Substance: ERGOCALCIFEROL
  12. REVLIMID [Suspect]
     Active Substance: LENALIDOMIDE
     Indication: PLASMA CELL MYELOMA
     Route: 048
     Dates: start: 20210619

REACTIONS (4)
  - Muscle spasms [None]
  - Gastrointestinal disorder [None]
  - Nausea [None]
  - Diarrhoea [None]

NARRATIVE: CASE EVENT DATE: 20210625
